FAERS Safety Report 20619176 (Version 10)
Quarter: 2022Q3

REPORT INFORMATION
  Report Type: Spontaneous
  Country: US (occurrence: US)
  Receive Date: 20220322
  Receipt Date: 20220701
  Transmission Date: 20221026
  Serious: Yes (Hospitalization)
  Sender: FDA-Public Use
  Company Number: US-JNJFOC-20220335911

PATIENT
  Age: 20 Year
  Sex: Female

DRUGS (13)
  1. VELETRI [Suspect]
     Active Substance: EPOPROSTENOL
     Indication: Pulmonary arterial hypertension
     Route: 042
     Dates: start: 20210302, end: 20220315
  2. VELETRI [Suspect]
     Active Substance: EPOPROSTENOL
     Route: 042
     Dates: start: 202206
  3. ADCIRCA [Suspect]
     Active Substance: TADALAFIL
     Indication: Product used for unknown indication
     Route: 065
     Dates: start: 202107
  4. AMBRISENTAN [Suspect]
     Active Substance: AMBRISENTAN
     Indication: Pulmonary hypertension
     Route: 065
     Dates: start: 20190216
  5. AMBRISENTAN [Suspect]
     Active Substance: AMBRISENTAN
     Indication: Pulmonary arterial hypertension
     Dosage: 10
     Route: 065
     Dates: start: 20200727
  6. AMBRISENTAN [Suspect]
     Active Substance: AMBRISENTAN
     Route: 065
     Dates: start: 20190219
  7. AMBRISENTAN [Suspect]
     Active Substance: AMBRISENTAN
     Route: 065
     Dates: start: 202107
  8. AMBRISENTAN [Suspect]
     Active Substance: AMBRISENTAN
     Route: 065
     Dates: start: 201902
  9. AMBRISENTAN [Suspect]
     Active Substance: AMBRISENTAN
     Route: 065
     Dates: start: 201908
  10. REMODULIN [Suspect]
     Active Substance: TREPROSTINIL
     Indication: Pulmonary hypertension
     Dosage: 0.046ML/HOUR, USING 2.8ML OF REMODULIN 10MG/ML EVERY 48 HOURS
     Route: 058
     Dates: start: 202203
  11. REMODULIN [Suspect]
     Active Substance: TREPROSTINIL
     Indication: Pulmonary arterial hypertension
     Dosage: 0.046ML/HOUR, USING 2.8ML OF REMODULIN 10MG/ML EVERY 48 HOURS
     Route: 058
     Dates: start: 20220318
  12. REMODULIN [Suspect]
     Active Substance: TREPROSTINIL
     Route: 065
     Dates: start: 20220316
  13. REMODULIN [Suspect]
     Active Substance: TREPROSTINIL
     Route: 065
     Dates: start: 202203

REACTIONS (10)
  - Complication associated with device [Unknown]
  - Dyspnoea [Recovering/Resolving]
  - Device dislocation [Not Recovered/Not Resolved]
  - Myalgia [Unknown]
  - Headache [Unknown]
  - Diarrhoea [Unknown]
  - Vaginal haemorrhage [Unknown]
  - Fluid retention [Unknown]
  - Swelling [Unknown]
  - Pain [Unknown]

NARRATIVE: CASE EVENT DATE: 20220311
